FAERS Safety Report 18041794 (Version 1)
Quarter: 2020Q3

REPORT INFORMATION
  Report Type: Spontaneous
  Country: NL (occurrence: NL)
  Receive Date: 20200720
  Receipt Date: 20200720
  Transmission Date: 20201103
  Serious: Yes (Hospitalization, Other)
  Sender: FDA-Public Use
  Company Number: NL-TEVA-2020-NL-1793450

PATIENT
  Age: 52 Year
  Sex: Male

DRUGS (3)
  1. AMOXICILLINE/CLAVULAANZUUR MYLAN 500/125 MG [Suspect]
     Active Substance: AMOXICILLIN\CLAVULANIC ACID
     Dosage: 500/125 MG. TOTAL 6 TABLETS USED IN 2 DAYS.
     Dates: start: 20200613, end: 20200614
  2. CLINDAMYCINE TEVA 300 MG, CAPSULES [Suspect]
     Active Substance: CLINDAMYCIN
     Indication: RASH
     Dates: start: 20200616
  3. TAVEGIL [CLEMASTINE] [Suspect]
     Active Substance: CLEMASTINE
     Indication: RASH
     Dosage: 2 X PER 1 TABLET FOR 2 DAYS
     Dates: start: 20200616

REACTIONS (14)
  - Condition aggravated [Unknown]
  - Burning sensation [Not Recovered/Not Resolved]
  - Skin irritation [Not Recovered/Not Resolved]
  - Energy increased [Not Recovered/Not Resolved]
  - Drug ineffective [Unknown]
  - Rash vesicular [Not Recovered/Not Resolved]
  - Pain [Not Recovered/Not Resolved]
  - Hypersensitivity [Unknown]
  - Pruritus [Recovering/Resolving]
  - Skin exfoliation [Not Recovered/Not Resolved]
  - Infection [Recovered/Resolved]
  - Scratch [Not Recovered/Not Resolved]
  - Surgery [Unknown]
  - Incorrect product administration duration [Unknown]

NARRATIVE: CASE EVENT DATE: 202006
